FAERS Safety Report 19879719 (Version 1)
Quarter: 2021Q3

REPORT INFORMATION
  Report Type: Spontaneous
  Country: FR (occurrence: FR)
  Receive Date: 20210924
  Receipt Date: 20210924
  Transmission Date: 20211014
  Serious: Yes (Life-Threatening, Hospitalization, Other)
  Sender: FDA-Public Use
  Company Number: FR-PFIZER INC-202101214084

PATIENT
  Age: 25 Year
  Sex: Male

DRUGS (4)
  1. CATHINONE [Suspect]
     Active Substance: CATHINONE
     Indication: SUBSTANCE DEPENDENCE
     Dosage: UNSPECIFIED DOSE
     Route: 045
     Dates: start: 2017, end: 2019
  2. XANAX [Suspect]
     Active Substance: ALPRAZOLAM
     Dosage: 0 TO 10 TABLETS DAILY
     Route: 048
     Dates: start: 202106
  3. CATHINONE [Suspect]
     Active Substance: CATHINONE
     Dosage: UNSPECIFIED DOSE (BUT 1000 EUROS MONTHLY MAXIMUM)
     Route: 042
     Dates: start: 2019
  4. GAMMA?BUTYROLACTONE [Suspect]
     Active Substance: BUTYROLACTONE
     Indication: DRUG DEPENDENCE
     Dosage: UNSPECIFIED DOSE
     Route: 048
     Dates: start: 2018, end: 2018

REACTIONS (6)
  - Injection site abscess [Recovered/Resolved]
  - Drug dependence [Recovering/Resolving]
  - Abnormal loss of weight [Recovering/Resolving]
  - Sleep disorder [Recovering/Resolving]
  - Overdose [Unknown]
  - Toxicity to various agents [Recovered/Resolved]

NARRATIVE: CASE EVENT DATE: 2017
